FAERS Safety Report 9842400 (Version 1)
Quarter: 2013Q4

REPORT INFORMATION
  Report Type: Spontaneous
  Country: US (occurrence: None)
  Receive Date: 20131223
  Receipt Date: 20131223
  Transmission Date: 20140711
  Serious: Yes (Other)
  Sender: FDA-Public Use
  Company Number: 219963LEO

PATIENT
  Age: 54 Year
  Sex: Female

DRUGS (4)
  1. PICATO [Suspect]
     Indication: ACTINIC KERATOSIS
     Route: 061
     Dates: start: 20121220, end: 20121222
  2. THYROID  PILL (THYROID THERAPY) [Concomitant]
  3. CHOLESTEROL PILL (CHOLESTEROL- AND TRIGLYCERIDE REDUCERS) [Concomitant]
  4. ULCER MEDICATION (DRUGS FOR TREATMENT OF PEPTIC ULCER) [Concomitant]

REACTIONS (1)
  - Application site pain [None]
